FAERS Safety Report 8235852-0 (Version None)
Quarter: 2012Q1

REPORT INFORMATION
  Report Type: 
  Country: None (occurrence: None)
  Receive Date: 20120326
  Receipt Date: 20120315
  Transmission Date: 20120608
  Serious: Yes (Hospitalization)
  Sender: FDA-Public Use
  Company Number: US-ASTRAZENECA-2012SE17837

PATIENT
  Sex: Female

DRUGS (5)
  1. METFORMIN HCL [Concomitant]
  2. LITHIUM CARBONATE [Concomitant]
  3. SEROQUEL XR [Suspect]
     Indication: LOSS OF CONSCIOUSNESS
     Route: 048
     Dates: start: 20110101
  4. XANAX [Concomitant]
  5. ZYPREXA [Concomitant]
     Indication: SLEEP DISORDER

REACTIONS (9)
  - DRUG DOSE OMISSION [None]
  - ABASIA [None]
  - BALANCE DISORDER [None]
  - OFF LABEL USE [None]
  - IMPAIRED WORK ABILITY [None]
  - ADVERSE EVENT [None]
  - THINKING ABNORMAL [None]
  - BIPOLAR DISORDER [None]
  - SLEEP DISORDER DUE TO GENERAL MEDICAL CONDITION, INSOMNIA TYPE [None]
